FAERS Safety Report 24840675 (Version 2)
Quarter: 2025Q1

REPORT INFORMATION
  Report Type: Report from Study
  Country: IN (occurrence: IN)
  Receive Date: 20250114
  Receipt Date: 20250214
  Transmission Date: 20250409
  Serious: Yes (Other)
  Sender: PFIZER
  Company Number: IN-TAKEDA-2024TUS128007

PATIENT
  Age: 37 Year
  Sex: Male

DRUGS (1)
  1. ADCETRIS [Suspect]
     Active Substance: BRENTUXIMAB VEDOTIN
     Indication: Hodgkin^s disease refractory
     Route: 042
     Dates: start: 20241115

REACTIONS (2)
  - Liver function test abnormal [Unknown]
  - Hodgkin^s disease refractory [Unknown]
